FAERS Safety Report 5368767-6 (Version None)
Quarter: 2007Q2

REPORT INFORMATION
  Report Type: 
  Country: None (occurrence: None)
  Receive Date: 20070618
  Receipt Date: 20061005
  Transmission Date: 20071010
  Serious: Yes (Other)
  Sender: FDA-Public Use
  Company Number: WAES 0706USA02610

PATIENT
  Age: 55 Year
  Sex: Female
  Weight: 63.05 kg

DRUGS (15)
  1. PRINIVIL [Suspect]
     Indication: HYPERTENSION
     Dosage: 40 MG/DAILY/PO
     Route: 048
     Dates: start: 20060922, end: 20060927
  2. TAB ETORICOXIB 90 MG [Suspect]
     Indication: RHEUMATOID ARTHRITIS
     Dosage: 90 MG/DAILY/PO
     Route: 048
     Dates: start: 20060825, end: 20060908
  3. TAB ETORICOXIB 90 MG [Suspect]
     Indication: RHEUMATOID ARTHRITIS
     Dosage: 90 MG/DAILY/PO
     Route: 048
     Dates: start: 20060909, end: 20060927
  4. TAB PLACEBO (UNSPECIFIED) UNK [Suspect]
     Indication: RHEUMATOID ARTHRITIS
     Dosage: UNK/UNK/PO
     Route: 048
     Dates: start: 20060825, end: 20060908
  5. TAB PLACEBO (UNSPECIFIED) UNK [Suspect]
     Indication: RHEUMATOID ARTHRITIS
     Dosage: UNK/UNK/PO
     Route: 048
     Dates: start: 20060825, end: 20060908
  6. TAB PLACEBO (UNSPECIFIED) UNK [Suspect]
     Indication: RHEUMATOID ARTHRITIS
     Dosage: UNK/UNK/PO
     Route: 048
     Dates: start: 20060825, end: 20060908
  7. TAB PLACEBO (UNSPECIFIED) UNK [Suspect]
     Indication: RHEUMATOID ARTHRITIS
     Dosage: UNK/UNK/PO
     Route: 048
     Dates: start: 20060909, end: 20060927
  8. NEXIUM [Concomitant]
  9. PREMARIN [Concomitant]
  10. TOPROL-XL [Concomitant]
  11. ASPIRIN [Concomitant]
  12. DICLOFENAC [Concomitant]
  13. HYDROXYCHLOROQUINE SULFATE [Concomitant]
  14. LISINOPRIL [Concomitant]
  15. PYRIDOXINE HCL [Concomitant]

REACTIONS (7)
  - BLOOD PRESSURE FLUCTUATION [None]
  - DERMATITIS [None]
  - DRUG INEFFECTIVE [None]
  - LIP SWELLING [None]
  - PHARYNGITIS STREPTOCOCCAL [None]
  - STAPHYLOCOCCAL SCALDED SKIN SYNDROME [None]
  - VIRAL RASH [None]
